FAERS Safety Report 18895759 (Version 1)
Quarter: 2021Q1

REPORT INFORMATION
  Report Type: Spontaneous
  Country: US (occurrence: US)
  Receive Date: 20210216
  Receipt Date: 20210216
  Transmission Date: 20210420
  Serious: Yes (Hospitalization, Other)
  Sender: FDA-Public Use
  Company Number: US-AMGEN-USASP2021022753

PATIENT
  Sex: Female

DRUGS (1)
  1. FILGRASTIM [Suspect]
     Active Substance: FILGRASTIM
     Indication: INFANTILE GENETIC AGRANULOCYTOSIS
     Dosage: UNK UNK, QD (AVERAGE DOSES OF 20 MICROGRAM/KILOGRAM/DAY)
     Route: 065

REACTIONS (6)
  - Infection [Recovered/Resolved]
  - Staphylococcal infection [Recovered/Resolved]
  - Proteus test positive [Recovered/Resolved]
  - Ulcer [Recovered/Resolved]
  - Abscess [Recovered/Resolved]
  - Breast abscess [Recovered/Resolved]
